FAERS Safety Report 22174384 (Version 2)
Quarter: 2023Q2

REPORT INFORMATION
  Report Type: Report from Study
  Country: GB (occurrence: GB)
  Receive Date: 20230405
  Receipt Date: 20230412
  Transmission Date: 20230721
  Serious: Yes (Hospitalization)
  Sender: FDA-Public Use
  Company Number: GB-002147023-NVSC2023GB073939

PATIENT
  Age: 53 Year
  Sex: Male

DRUGS (2)
  1. TRAMETINIB [Suspect]
     Active Substance: TRAMETINIB
     Indication: Langerhans^ cell histiocytosis
     Dosage: 2 MG, QD
     Route: 048
     Dates: start: 20230302
  2. TRAMETINIB [Suspect]
     Active Substance: TRAMETINIB
     Dosage: 1.5 MG, QD (STRENGTH: 500 MCG)
     Route: 065

REACTIONS (4)
  - Skin infection [Recovering/Resolving]
  - Hypertension [Recovering/Resolving]
  - Diarrhoea [Recovered/Resolved]
  - Rash [Recovering/Resolving]

NARRATIVE: CASE EVENT DATE: 20230313
